FAERS Safety Report 5593729-3 (Version None)
Quarter: 2008Q1

REPORT INFORMATION
  Report Type: 
  Country: None (occurrence: None)
  Receive Date: 20080116
  Receipt Date: 20080104
  Transmission Date: 20080703
  Serious: Yes (Hospitalization, Other)
  Sender: FDA-Public Use
  Company Number: CA-ELI_LILLY_AND_COMPANY-CA200801000957

PATIENT
  Age: 84 Year
  Sex: Female

DRUGS (9)
  1. FORTEO [Suspect]
     Indication: OSTEOPOROSIS
     Dosage: 20 UG, DAILY (1/D)
     Route: 058
     Dates: start: 20070112
  2. ASPIRIN [Concomitant]
  3. METHOTREXATE [Concomitant]
  4. LOSEC I.V. [Concomitant]
  5. PREDNISONE TAB [Concomitant]
  6. DIGITALIS TAB [Concomitant]
  7. CALCIUM GLUCONATE [Concomitant]
  8. VITAMIN D [Concomitant]
  9. VITAMIN E /00110501/ [Concomitant]

REACTIONS (2)
  - FALL [None]
  - SKULL FRACTURE [None]
